FAERS Safety Report 19375885 (Version 1)
Quarter: 2021Q2

REPORT INFORMATION
  Report Type: Report from Study
  Country: None (occurrence: BR)
  Receive Date: 20210605
  Receipt Date: 20210605
  Transmission Date: 20210717
  Serious: Yes (Other)
  Sender: FDA-Public Use
  Company Number: BR-ABBVIE-21P-020-3935696-00

PATIENT
  Sex: Male
  Weight: 69 kg

DRUGS (5)
  1. GINKGO BILOBA [Concomitant]
     Active Substance: GINKGO
     Indication: DIABETES MELLITUS
     Dosage: TREATMENT STARTED LESS THAN 10 DAYS AGO.
     Route: 048
     Dates: start: 202105
  2. GINKGO BILOBA [Concomitant]
     Active Substance: GINKGO
     Indication: BLOOD CHOLESTEROL ABNORMAL
  3. DEPAKOTE ER [Suspect]
     Active Substance: DIVALPROEX SODIUM
     Dosage: PATIENT USED TO TAKE EVERY 12 HOURS
     Route: 048
  4. GINKGO BILOBA [Concomitant]
     Active Substance: GINKGO
     Indication: MEMORY IMPAIRMENT
  5. DEPAKOTE ER [Suspect]
     Active Substance: DIVALPROEX SODIUM
     Indication: SEIZURE
     Dosage: DAILY DOSE: 3 TABLETS
     Route: 048
     Dates: start: 2020

REACTIONS (3)
  - Drug dependence [Unknown]
  - Seizure [Unknown]
  - Inappropriate schedule of product administration [Unknown]
